FAERS Safety Report 8146134 (Version 5)
Quarter: 2013Q3

REPORT INFORMATION
  Report Type: Spontaneous
  Country: US (occurrence: US)
  Receive Date: 20110921
  Receipt Date: 20130802
  Transmission Date: 20140515
  Serious: Yes (Other)
  Sender: FDA-Public Use
  Company Number: US-ROCHE-788267

PATIENT
  Age: 30 Year
  Sex: Female
  Weight: 52.2 kg

DRUGS (1)
  1. ACCUTANE [Suspect]
     Indication: ACNE
     Route: 048
     Dates: start: 20020307, end: 200208

REACTIONS (3)
  - Colitis ulcerative [Unknown]
  - Large intestine polyp [Unknown]
  - Rectal polyp [Unknown]
